FAERS Safety Report 5505699-4 (Version None)
Quarter: 2007Q4

REPORT INFORMATION
  Report Type: 
  Country: None (occurrence: None)
  Receive Date: 20071102
  Receipt Date: 20071022
  Transmission Date: 20080405
  Serious: Yes (Hospitalization)
  Sender: FDA-Public Use
  Company Number: JP-PFIZER INC-2007082849

PATIENT
  Sex: Female

DRUGS (6)
  1. SALAZOPYRIN [Suspect]
     Route: 048
     Dates: start: 20070827, end: 20070905
  2. COLONEL [Concomitant]
  3. BIOFERMIN [Concomitant]
  4. GASCON [Concomitant]
  5. FERROMIA [Concomitant]
     Dosage: DAILY DOSE:50MG
     Route: 048
     Dates: start: 20070827, end: 20070905
  6. MIYARI BACTERIA [Concomitant]
     Route: 048
     Dates: start: 20070827, end: 20070905

REACTIONS (7)
  - ARTHRALGIA [None]
  - BODY TEMPERATURE INCREASED [None]
  - C-REACTIVE PROTEIN INCREASED [None]
  - CHILLS [None]
  - DRUG ERUPTION [None]
  - NAUSEA [None]
  - PAIN [None]
